FAERS Safety Report 9282694 (Version 1)
Quarter: 2013Q2

REPORT INFORMATION
  Report Type: Spontaneous
  Country: US (occurrence: None)
  Receive Date: 20130509
  Receipt Date: 20130509
  Transmission Date: 20140414
  Serious: Yes (Life-Threatening, Hospitalization, Congenital Anomaly, Other)
  Sender: FDA-Public Use
  Company Number: None

PATIENT
  Age: 4 Day
  Sex: Male
  Weight: 3.86 kg

DRUGS (1)
  1. BUPROPION [Suspect]
     Indication: SMOKING CESSATION THERAPY
     Dosage: 1 X DAY
     Route: 048
     Dates: start: 20110613, end: 20110801

REACTIONS (4)
  - Coarctation of the aorta [None]
  - Wolff-Parkinson-White syndrome [None]
  - Bicuspid aortic valve [None]
  - Dilatation ventricular [None]
